FAERS Safety Report 7681283-1 (Version None)
Quarter: 2011Q3

REPORT INFORMATION
  Report Type: 
  Country: None (occurrence: None)
  Receive Date: 20110804
  Receipt Date: 20110728
  Transmission Date: 20111222
  Serious: Yes (Other)
  Sender: FDA-Public Use
  Company Number: 2011SP035358

PATIENT
  Age: 56 Year
  Sex: Female
  Weight: 55 kg

DRUGS (5)
  1. FORTISIP [Concomitant]
  2. LANSOPRAZOLE [Concomitant]
  3. DIAZEPAM [Concomitant]
  4. LORATADINE [Concomitant]
  5. MIRTAZAPINE [Suspect]
     Indication: DEPRESSION
     Dosage: 30 MG;
     Dates: start: 20110201, end: 20110701

REACTIONS (4)
  - BASOPHIL COUNT DECREASED [None]
  - MONOCYTE COUNT DECREASED [None]
  - WHITE BLOOD CELL COUNT DECREASED [None]
  - NEUTROPHIL COUNT DECREASED [None]
